FAERS Safety Report 9049894 (Version 3)
Quarter: 2014Q2

REPORT INFORMATION
  Report Type: Spontaneous
  Country: US (occurrence: US)
  Receive Date: 20130205
  Receipt Date: 20140404
  Transmission Date: 20141212
  Serious: Yes (Hospitalization)
  Sender: FDA-Public Use
  Company Number: US-B.I. PHARMACEUTICALS,INC./RIDGEFIELD-2013-BI-02416BP

PATIENT
  Sex: Male

DRUGS (7)
  1. PRADAXA [Suspect]
     Indication: ANTICOAGULANT THERAPY
     Dosage: 300 MG
     Route: 065
     Dates: start: 20110203, end: 20120127
  2. MAXZIDE [Concomitant]
     Route: 065
     Dates: start: 20091015, end: 20121020
  3. CARDIZEM CD [Concomitant]
     Dosage: 120 MG
     Route: 065
  4. LASIX [Concomitant]
     Dosage: 40 MG
     Route: 065
     Dates: start: 20120127, end: 20121020
  5. LIPITOR [Concomitant]
     Dosage: 10 MG
     Route: 065
     Dates: start: 20090828, end: 20120313
  6. ACTOS [Concomitant]
     Dosage: 30 MG
     Route: 065
     Dates: start: 20090817, end: 20120801
  7. GLIPIZIDE [Concomitant]
     Dosage: 10 MG
     Route: 065
     Dates: start: 20090731, end: 20121020

REACTIONS (3)
  - Gastrointestinal haemorrhage [Unknown]
  - Diverticulum [Unknown]
  - Haemorrhagic anaemia [Unknown]
